FAERS Safety Report 6801448-8 (Version None)
Quarter: 2010Q2

REPORT INFORMATION
  Report Type: 
  Country: None (occurrence: None)
  Receive Date: 20100629
  Receipt Date: 20100618
  Transmission Date: 20101027
  Serious: Yes (Hospitalization)
  Sender: FDA-Public Use
  Company Number: JP-ROCHE-710121

PATIENT
  Sex: Male

DRUGS (3)
  1. CAPECITABINE [Suspect]
     Indication: GASTROOESOPHAGEAL CANCER
     Dosage: NOTE:2 WEEKS ADMINISTRATION FOLLOWED BY 1 WEEK REST
     Route: 048
  2. CISPLATIN [Suspect]
     Indication: GASTROOESOPHAGEAL CANCER
     Dosage: DOSAGE IS UNCERTAIN.
     Route: 042
  3. ERBITUX [Concomitant]
     Dosage: DOSAGE IS UNCERTAIN
     Route: 042

REACTIONS (4)
  - BLOOD PRESSURE DECREASED [None]
  - INFECTION [None]
  - NEUTROPENIA [None]
  - RENAL DISORDER [None]
